FAERS Safety Report 24326786 (Version 2)
Quarter: 2025Q2

REPORT INFORMATION
  Report Type: Report from Study
  Country: CA (occurrence: CA)
  Receive Date: 20240917
  Receipt Date: 20250526
  Transmission Date: 20250716
  Serious: Yes (Other)
  Sender: TAKEDA
  Company Number: CA-TAKEDA-2024TUS091855

PATIENT
  Age: 46 Year
  Sex: Female
  Weight: 52.2 kg

DRUGS (1)
  1. VEDOLIZUMAB [Suspect]
     Active Substance: VEDOLIZUMAB
     Indication: Crohn^s disease

REACTIONS (1)
  - Crohn^s disease [Recovering/Resolving]

NARRATIVE: CASE EVENT DATE: 20240810
